FAERS Safety Report 5680063-6 (Version None)
Quarter: 2008Q1

REPORT INFORMATION
  Report Type: 
  Country: None (occurrence: None)
  Receive Date: 20080325
  Receipt Date: 20080325
  Transmission Date: 20080703
  Serious: No
  Sender: FDA-Public Use
  Company Number: None

PATIENT
  Sex: Male

DRUGS (1)
  1. HEP FLUSH KIT [Suspect]
     Indication: INTRAVENOUS CATHETER MANAGEMENT
     Dosage: 5ML Q12 HR IV DRIP
     Route: 041
     Dates: start: 20040311, end: 20080324

REACTIONS (2)
  - DISCOMFORT [None]
  - IRRITABILITY [None]
